FAERS Safety Report 7319561-8 (Version None)
Quarter: 2011Q1

REPORT INFORMATION
  Report Type: 
  Country: None (occurrence: None)
  Receive Date: 20110228
  Receipt Date: 20100601
  Transmission Date: 20110831
  Serious: No
  Sender: FDA-Public Use
  Company Number: A0860609A

PATIENT
  Age: 33 Year
  Sex: Male
  Weight: 94.1 kg

DRUGS (2)
  1. TRAZODONE [Concomitant]
  2. LAMICTAL [Suspect]
     Indication: BIPOLAR DISORDER
     Dosage: 200MG TWICE PER DAY
     Route: 048

REACTIONS (1)
  - BLOOD TRIGLYCERIDES INCREASED [None]
